FAERS Safety Report 5303464-4 (Version None)
Quarter: 2007Q2

REPORT INFORMATION
  Report Type: 
  Country: None (occurrence: None)
  Receive Date: 20070420
  Receipt Date: 20070412
  Transmission Date: 20071010
  Serious: Yes (Death)
  Sender: FDA-Public Use
  Company Number: HU-ABBOTT-07P-076-0361579-00

PATIENT
  Sex: Female
  Weight: 83 kg

DRUGS (3)
  1. REDUCTIL 10MG [Suspect]
     Indication: OBESITY
     Route: 048
     Dates: start: 20070206
  2. BLOKIUM DIU/ATENOLOLUM, CHLORTALIDONUM [Concomitant]
     Indication: HYPERTONIA
     Route: 048
     Dates: start: 20050101, end: 20070309
  3. RAMACE/RAMIPRIL [Concomitant]
     Indication: HYPERTONIA
     Route: 048

REACTIONS (3)
  - CARDIAC DISORDER [None]
  - CARDIAC FAILURE [None]
  - DIARRHOEA [None]
